FAERS Safety Report 14296956 (Version 1)
Quarter: 2017Q4

REPORT INFORMATION
  Report Type: Spontaneous
  Country: US (occurrence: US)
  Receive Date: 20171218
  Receipt Date: 20171218
  Transmission Date: 20180321
  Serious: Yes (Hospitalization, Other)
  Sender: FDA-Public Use
  Company Number: US-PFIZER INC-2017532814

PATIENT
  Age: 82 Year
  Sex: Male
  Weight: 74.84 kg

DRUGS (1)
  1. ATROPINE SULFATE/DIPHENOXYLATE HYDROCHLORIDE [Suspect]
     Active Substance: ATROPINE SULFATE\DIPHENOXYLATE HYDROCHLORIDE
     Indication: DIARRHOEA
     Dosage: A TOTAL OF 6 TABLETS THAT DAY/ TAKE ONE TABLET BY MOUTH AFTER EACH LOOSE STOOL MAXIMUM OF 8 TABLETS
     Route: 048
     Dates: start: 20170726, end: 20170726

REACTIONS (4)
  - Drug ineffective [Recovered/Resolved]
  - White blood cell count decreased [Recovered/Resolved]
  - Weight decreased [Recovering/Resolving]
  - Dehydration [Recovered/Resolved]

NARRATIVE: CASE EVENT DATE: 20170726
